FAERS Safety Report 17193296 (Version 2)
Quarter: 2020Q1

REPORT INFORMATION
  Report Type: Report from Study
  Country: DE (occurrence: DE)
  Receive Date: 20191223
  Receipt Date: 20200106
  Transmission Date: 20200409
  Serious: Yes (Hospitalization)
  Sender: FDA-Public Use
  Company Number: DE-ACTELION-A-NJ2019-199647

PATIENT
  Age: 77 Year
  Sex: Female

DRUGS (1)
  1. VENTAVIS [Suspect]
     Active Substance: ILOPROST
     Indication: PULMONARY ARTERIAL HYPERTENSION
     Dosage: 10 MCG, 5/D
     Route: 055
     Dates: start: 20190225

REACTIONS (2)
  - Polyneuropathy [Recovering/Resolving]
  - Inappropriate schedule of product administration [Unknown]
